FAERS Safety Report 10586435 (Version 3)
Quarter: 2014Q4

REPORT INFORMATION
  Report Type: Spontaneous
  Country: DK (occurrence: DK)
  Receive Date: 20141117
  Receipt Date: 20141209
  Transmission Date: 20150529
  Serious: Yes (Death, Hospitalization, Other)
  Sender: FDA-Public Use
  Company Number: DK-ROCHE-1488630

PATIENT
  Age: 61 Year
  Sex: Male

DRUGS (9)
  1. BRILIQUE [Concomitant]
     Active Substance: TICAGRELOR
     Indication: ANTICOAGULANT THERAPY
     Route: 065
  2. MABTHERA [Suspect]
     Active Substance: RITUXIMAB
     Indication: MANTLE CELL LYMPHOMA
     Route: 042
     Dates: start: 20140423, end: 20140425
  3. MABTHERA [Suspect]
     Active Substance: RITUXIMAB
     Route: 042
     Dates: start: 20140521, end: 20140521
  4. DEXAMETHASONE. [Suspect]
     Active Substance: DEXAMETHASONE
     Indication: MANTLE CELL LYMPHOMA
     Route: 065
     Dates: start: 20140423, end: 20140425
  5. ACETYLSALICYLIC ACID [Concomitant]
     Active Substance: ASPIRIN
  6. LEVACT (DENMARK) [Suspect]
     Active Substance: BENDAMUSTINE HYDROCHLORIDE
     Indication: MANTLE CELL LYMPHOMA
     Route: 042
     Dates: start: 20140521, end: 20140521
  7. CYTARABIN FRESENIUS KABI [Suspect]
     Active Substance: CYTARABINE
     Indication: MANTLE CELL LYMPHOMA
     Route: 065
     Dates: start: 20140423, end: 20140425
  8. CARVEDILOL. [Concomitant]
     Active Substance: CARVEDILOL
     Indication: HYPERCHOLESTEROLAEMIA
     Route: 065
  9. CISPLATIN ACCORD [Suspect]
     Active Substance: CISPLATIN
     Indication: MANTLE CELL LYMPHOMA
     Route: 065
     Dates: start: 20140423, end: 20140425

REACTIONS (9)
  - Cardiac arrest [Fatal]
  - Coronary artery thrombosis [Fatal]
  - Medical device complication [Unknown]
  - Thrombocytopenia [Recovered/Resolved]
  - Chills [Recovered/Resolved]
  - Coronary artery occlusion [Unknown]
  - Tachycardia [Not Recovered/Not Resolved]
  - Infection [Recovered/Resolved]
  - Chest pain [Not Recovered/Not Resolved]

NARRATIVE: CASE EVENT DATE: 20140502
